FAERS Safety Report 20205803 (Version 2)
Quarter: 2021Q4

REPORT INFORMATION
  Report Type: Spontaneous
  Country: JP (occurrence: JP)
  Receive Date: 20211220
  Receipt Date: 20211228
  Transmission Date: 20220303
  Serious: Yes (Hospitalization, Other)
  Sender: FDA-Public Use
  Company Number: JP-MLMSERVICE-20211207-3258929-1

PATIENT
  Age: 68 Year
  Sex: Male

DRUGS (12)
  1. LEVETIRACETAM [Suspect]
     Active Substance: LEVETIRACETAM
     Indication: Epilepsy
     Dosage: 500 MILLIGRAM, 2X/DAY (BID)  (EVERY 12 HR)
     Route: 042
     Dates: start: 2018
  2. LEVETIRACETAM [Suspect]
     Active Substance: LEVETIRACETAM
     Dosage: 1000 MILLIGRAM, 2X/DAY (BID)
     Route: 048
     Dates: start: 2018
  3. LEVETIRACETAM [Suspect]
     Active Substance: LEVETIRACETAM
     Dosage: 1500 MILLIGRAM, 2X/DAY (BID)
     Route: 048
     Dates: start: 2018
  4. LEVETIRACETAM [Suspect]
     Active Substance: LEVETIRACETAM
     Dosage: 750 MILLIGRAM, 2X/DAY (BID)
     Route: 048
     Dates: start: 2018
  5. LEVETIRACETAM [Suspect]
     Active Substance: LEVETIRACETAM
     Dosage: 500 MILLIGRAM, 2X/DAY (BID)
     Route: 048
     Dates: start: 2018
  6. LEVETIRACETAM [Suspect]
     Active Substance: LEVETIRACETAM
     Dosage: LEV DOSE WAS REDUCED AND DISCONTINUED
     Route: 048
     Dates: start: 2018
  7. WARFARIN [Concomitant]
     Active Substance: WARFARIN
     Indication: Product used for unknown indication
     Dosage: 1 MILLIGRAM, ONCE DAILY (QD)
  8. WARFARIN [Concomitant]
     Active Substance: WARFARIN
     Dosage: 1.5 MILLIGRAM, ONCE DAILY (QD)
     Dates: start: 2017
  9. VALPROIC ACID [Concomitant]
     Active Substance: VALPROIC ACID
     Indication: Epilepsy
     Dosage: 200 MILLIGRAM
     Dates: start: 2018
  10. VALPROIC ACID [Concomitant]
     Active Substance: VALPROIC ACID
     Dosage: 400 MILLIGRAM
     Dates: start: 2018
  11. DIAZEPAM [Concomitant]
     Active Substance: DIAZEPAM
     Indication: Seizure
     Dosage: AT NIGHT
     Route: 054
  12. DIAZEPAM [Concomitant]
     Active Substance: DIAZEPAM
     Route: 042

REACTIONS (6)
  - Dehydration [Recovered/Resolved]
  - Decreased appetite [Unknown]
  - Hypophagia [Unknown]
  - Drug level increased [Recovering/Resolving]
  - Somnolence [Unknown]
  - Anger [Unknown]

NARRATIVE: CASE EVENT DATE: 20180101
